FAERS Safety Report 5454895-3 (Version None)
Quarter: 2007Q3

REPORT INFORMATION
  Report Type: 
  Country: None (occurrence: None)
  Receive Date: 20070917
  Receipt Date: 20070228
  Transmission Date: 20080115
  Serious: Yes (Hospitalization)
  Sender: FDA-Public Use
  Company Number: US-ASTRAZENECA-2006UW20181

PATIENT
  Age: 608 Month
  Sex: Male
  Weight: 96.8 kg

DRUGS (8)
  1. SEROQUEL [Suspect]
     Indication: SCHIZOPHRENIA
     Route: 048
     Dates: start: 20031001, end: 20040101
  2. SEROQUEL [Suspect]
     Indication: DEPRESSION
     Route: 048
     Dates: start: 20031001, end: 20040101
  3. RISPERDAL [Suspect]
     Indication: SCHIZOPHRENIA
     Dosage: 2 MG
     Dates: start: 20000301, end: 20030801
  4. RISPERDAL [Suspect]
     Indication: DEPRESSION
     Dosage: 2 MG
     Dates: start: 20000301, end: 20030801
  5. ZYPREXA [Concomitant]
  6. GEODON [Concomitant]
     Dates: start: 20060501
  7. LEXAPRO [Concomitant]
     Dates: start: 20030101
  8. PRIMIDONE [Concomitant]
     Dates: start: 20060901

REACTIONS (6)
  - DIABETES MELLITUS [None]
  - DIZZINESS [None]
  - INFLUENZA LIKE ILLNESS [None]
  - PARAESTHESIA [None]
  - VISION BLURRED [None]
  - VISUAL DISTURBANCE [None]
